FAERS Safety Report 4748789-6 (Version None)
Quarter: 2005Q3

REPORT INFORMATION
  Report Type: 
  Country: None (occurrence: None)
  Receive Date: 20050812
  Receipt Date: 20050627
  Transmission Date: 20060218
  Serious: Yes (Other)
  Sender: FDA-Public Use
  Company Number: 409144

PATIENT
  Age: 51 Year
  Sex: Male
  Weight: 83.9 kg

DRUGS (6)
  1. PEGASYS [Suspect]
     Indication: HEPATITIS C VIRUS
     Dosage: 180 MCG 1 PER WEEK SUBCUTANEOUS
     Route: 058
     Dates: start: 20040423, end: 20050325
  2. REBETOL [Suspect]
     Indication: HEPATITIS C VIRUS
     Dosage: 1000 MG DAILY ORAL
     Route: 048
     Dates: start: 20040423, end: 20050325
  3. ANTIBIOTICS (ANTIBIOTIC NOS) [Concomitant]
  4. ZOLOFT [Concomitant]
  5. DIFLUCAN [Concomitant]
  6. VERAPAMIL [Concomitant]

REACTIONS (5)
  - COCCIDIOIDOMYCOSIS [None]
  - DEPRESSION [None]
  - HYPERTENSION [None]
  - PNEUMONIA [None]
  - SARCOIDOSIS [None]
